FAERS Safety Report 9765036 (Version 1)
Quarter: 2013Q4

REPORT INFORMATION
  Report Type: Spontaneous
  Country: US (occurrence: None)
  Receive Date: 20131216
  Receipt Date: 20131216
  Transmission Date: 20140711
  Serious: No
  Sender: FDA-Public Use
  Company Number: None

PATIENT
  Age: 64 Year
  Sex: Female
  Weight: 106.14 kg

DRUGS (23)
  1. INVOKANA [Suspect]
     Indication: TYPE 2 DIABETES MELLITUS
     Dosage: 1 PILL
     Route: 048
     Dates: start: 20131118, end: 20131121
  2. OXYBUTYNIN [Concomitant]
  3. SIMVASTATIN [Concomitant]
  4. LOVAZA [Concomitant]
  5. CARVEDILOL [Concomitant]
  6. TRADJENTA [Concomitant]
  7. METFORMIN [Concomitant]
  8. HYDRALAZINE [Concomitant]
  9. LOSARTAN [Concomitant]
  10. HYDROCHLOROTHIAZIDE [Concomitant]
  11. KLOR-CON [Concomitant]
  12. FLECAINIDE [Concomitant]
  13. APAP/CODEINE [Concomitant]
  14. FUROSEMIDE [Concomitant]
  15. LYRICA [Concomitant]
  16. CLONAZEPAM [Concomitant]
  17. VALACYCLOVIR [Concomitant]
  18. ASPIRIN [Concomitant]
  19. MAGNESIUM SUPPLEMENT [Concomitant]
  20. ELECTROLYTES [Concomitant]
  21. BIOTIN NAILS [Concomitant]
  22. VITAMIN D3 SUPPLEMENT [Concomitant]
  23. SLOW RELEASE [Concomitant]

REACTIONS (3)
  - Arrhythmia [None]
  - Gout [None]
  - Blood glucose increased [None]
